FAERS Safety Report 10025728 (Version 1)
Quarter: 2014Q1

REPORT INFORMATION
  Report Type: Spontaneous
  Country: US (occurrence: None)
  Receive Date: 20140318
  Receipt Date: 20140318
  Transmission Date: 20141002
  Serious: Yes (Other)
  Sender: FDA-Public Use
  Company Number: 2235434

PATIENT
  Sex: Male

DRUGS (1)
  1. LIDOCAINE HCL [Suspect]
     Route: 050
     Dates: end: 20130805

REACTIONS (3)
  - Upper respiratory tract infection [None]
  - Lung infection [None]
  - Staphylococcal infection [None]
